FAERS Safety Report 7348421 (Version 8)
Quarter: 2012Q4

REPORT INFORMATION
  Report Type: 
  Country: US (occurrence: US)
  Receive Date: 20100408
  Receipt Date: 20121019
  Transmission Date: 20130627
  Serious: Yes (Other)
  Sender: FDA-Public Use
  Company Number: US-BAYER-201018024NA

PATIENT
  Age: 74 Year
  Sex: Male
  Weight: 67.35 kg

DRUGS (40)
  1. MAGNEVIST [Suspect]
     Indication: IMAGING PROCEDURE
     Dates: start: 20010402, end: 20010402
  2. MAGNEVIST [Suspect]
     Indication: NUCLEAR MAGNETIC RESONANCE IMAGING BRAIN
     Dates: start: 20020711, end: 20020711
  3. MAGNEVIST [Suspect]
     Indication: NUCLEAR MAGNETIC RESONANCE IMAGING BRAIN
  4. OMNISCAN [Suspect]
     Indication: NUCLEAR MAGNETIC RESONANCE IMAGING
     Dosage: UNK
     Dates: start: 20041212, end: 20041212
  5. OMNISCAN [Suspect]
     Indication: NUCLEAR MAGNETIC RESONANCE IMAGING
     Dosage: UNK
     Dates: start: 20041213, end: 20041213
  6. OMNISCAN [Suspect]
     Indication: NUCLEAR MAGNETIC RESONANCE IMAGING
     Dosage: 15 ml (Daily Dose), ,
     Dates: start: 20050119, end: 20050119
  7. OMNISCAN [Suspect]
     Indication: NUCLEAR MAGNETIC RESONANCE IMAGING
     Route: 042
     Dates: start: 20050517, end: 20050517
  8. OMNISCAN [Suspect]
     Indication: NUCLEAR MAGNETIC RESONANCE IMAGING
     Dosage: 15 ml (Daily Dose), ,
     Dates: start: 20050913, end: 20050913
  9. AMIODARONE [Concomitant]
  10. PREDNISONE [Concomitant]
     Dosage: 7 mg, UNK
  11. SENSIPAR [Concomitant]
     Dosage: 30 mg, UNK
  12. ASPIRIN [Concomitant]
  13. EPOGEN [Concomitant]
  14. IRON [Concomitant]
  15. NORVASC [Concomitant]
     Dosage: 5 mg, QD
  16. RENAGEL [SEVELAMER] [Concomitant]
     Dosage: 800 mg, 3-4 with meals and 1-2 with snacks
  17. ISOSORBIDE [Concomitant]
  18. TOPROL [Concomitant]
  19. PHOSLO [Concomitant]
  20. TENORMIN [Concomitant]
  21. VASOTEC [Concomitant]
  22. CARDURA [Concomitant]
  23. GLYBURIDE [Concomitant]
  24. VENOFER [Concomitant]
  25. ALTERNAGEL [Concomitant]
  26. ZEMPLAR [Concomitant]
     Dates: start: 20050726
  27. TRICOR [Concomitant]
     Dosage: 54 mg, QD
  28. CELEXA [Concomitant]
     Dosage: 40 mg, QD
  29. CIPRO [Concomitant]
     Dosage: 500 mg, QD
     Dates: start: 20041215, end: 20051004
  30. DIATX [Concomitant]
  31. FOLIC ACID [Concomitant]
     Dosage: 5 mg, UNK
  32. DURAGESIC [Concomitant]
     Indication: PAIN
     Dosage: 50 mg/hr patch, Q72HR
     Route: 062
  33. COUMADIN [Concomitant]
  34. ARANESP [Concomitant]
  35. HYDROCODONE [HYDROCODONE] [Concomitant]
  36. AMBIEN [Concomitant]
  37. ALPRAZOLAM [Concomitant]
  38. SENSIPAR [Concomitant]
  39. NEXIUM [Concomitant]
  40. ASPIRIN [ACETYLSALICYLIC ACID] [Concomitant]

REACTIONS (28)
  - Nephrogenic systemic fibrosis [Not Recovered/Not Resolved]
  - Hypoaesthesia [Not Recovered/Not Resolved]
  - Dry skin [Not Recovered/Not Resolved]
  - Skin exfoliation [Not Recovered/Not Resolved]
  - Pain [Not Recovered/Not Resolved]
  - Joint swelling [Not Recovered/Not Resolved]
  - Joint stiffness [Not Recovered/Not Resolved]
  - Skin hypertrophy [Not Recovered/Not Resolved]
  - Extremity contracture [Not Recovered/Not Resolved]
  - Deformity [Not Recovered/Not Resolved]
  - Scar [Not Recovered/Not Resolved]
  - General physical health deterioration [Not Recovered/Not Resolved]
  - Exfoliative rash [Not Recovered/Not Resolved]
  - Skin fissures [Not Recovered/Not Resolved]
  - Skin induration [Not Recovered/Not Resolved]
  - Burning sensation [Not Recovered/Not Resolved]
  - Oedema peripheral [Not Recovered/Not Resolved]
  - Rash [Not Recovered/Not Resolved]
  - Skin hypertrophy [Not Recovered/Not Resolved]
  - Joint contracture [Not Recovered/Not Resolved]
  - Muscular weakness [Not Recovered/Not Resolved]
  - Pain in extremity [Not Recovered/Not Resolved]
  - Pruritus [Not Recovered/Not Resolved]
  - Joint range of motion decreased [Not Recovered/Not Resolved]
  - Erythema [Not Recovered/Not Resolved]
  - Skin plaque [Not Recovered/Not Resolved]
  - Skin tightness [Not Recovered/Not Resolved]
  - Abasia [Not Recovered/Not Resolved]
